FAERS Safety Report 5031483-4 (Version None)
Quarter: 2006Q2

REPORT INFORMATION
  Report Type: 
  Country: None (occurrence: None)
  Receive Date: 20060504
  Receipt Date: 20050929
  Transmission Date: 20061013
  Serious: Yes (Other)
  Sender: FDA-Public Use
  Company Number: SUS1-2005-00722

PATIENT
  Sex: Male

DRUGS (1)
  1. AGRYLIN [Suspect]

REACTIONS (1)
  - RENAL IMPAIRMENT [None]
